FAERS Safety Report 5084481-9 (Version None)
Quarter: 2006Q3

REPORT INFORMATION
  Report Type: 
  Country: None (occurrence: None)
  Receive Date: 20060821
  Receipt Date: 20060816
  Transmission Date: 20061208
  Serious: Yes (Hospitalization)
  Sender: FDA-Public Use
  Company Number: FR-AVENTIS-200612827FR

PATIENT
  Age: 82 Year
  Sex: Female

DRUGS (7)
  1. LASILIX [Suspect]
     Indication: ESSENTIAL HYPERTENSION
     Route: 048
  2. BACTRIM [Suspect]
     Indication: DRUG USE FOR UNKNOWN INDICATION
     Route: 048
     Dates: start: 20060222, end: 20060225
  3. PREVISCAN [Suspect]
     Indication: ATRIAL FIBRILLATION
     Route: 048
     Dates: start: 20060223
  4. TENORMIN [Suspect]
     Indication: ESSENTIAL HYPERTENSION
     Route: 048
  5. TAREG [Suspect]
     Indication: ESSENTIAL HYPERTENSION
     Route: 048
  6. ASPIRIN [Concomitant]
  7. DIGOXIN [Concomitant]

REACTIONS (2)
  - BLOOD CREATININE INCREASED [None]
  - RENAL FAILURE [None]
